FAERS Safety Report 18684412 (Version 7)
Quarter: 2024Q4

REPORT INFORMATION
  Report Type: Spontaneous
  Country: US (occurrence: US)
  Receive Date: 20201230
  Receipt Date: 20241209
  Transmission Date: 20250114
  Serious: Yes (Death, Other)
  Sender: PURDUE
  Company Number: US-PURDUE-USA-2020-0194162

PATIENT
  Age: 20 Year
  Sex: Female

DRUGS (4)
  1. OXYCODONE HYDROCHLORIDE [Suspect]
     Active Substance: OXYCODONE HYDROCHLORIDE
     Indication: Insomnia
     Dosage: UNK
     Route: 048
  2. OXYCODONE HYDROCHLORIDE [Suspect]
     Active Substance: OXYCODONE HYDROCHLORIDE
     Dosage: UNK
     Route: 065
  3. FENTANYL [Suspect]
     Active Substance: FENTANYL
     Indication: Insomnia
     Dosage: UNK
     Route: 048
  4. FENTANYL [Suspect]
     Active Substance: FENTANYL
     Dosage: UNK
     Route: 065

REACTIONS (7)
  - Counterfeit product administered [Fatal]
  - Toxicity to various agents [Fatal]
  - Overdose [Fatal]
  - Drug abuse [Fatal]
  - Victim of homicide [Fatal]
  - Drug dependence [Unknown]
  - Product use in unapproved indication [Unknown]

NARRATIVE: CASE EVENT DATE: 20191223
